FAERS Safety Report 7455038-7 (Version None)
Quarter: 2011Q2

REPORT INFORMATION
  Report Type: 
  Country: None (occurrence: None)
  Receive Date: 20110503
  Receipt Date: 20110420
  Transmission Date: 20111010
  Serious: Yes (Other)
  Sender: FDA-Public Use
  Company Number: GB-BRISTOL-MYERS SQUIBB COMPANY-15633233

PATIENT
  Age: 50 Year
  Sex: Male

DRUGS (2)
  1. SULPHONYLUREA [Suspect]
  2. METFORMIN HCL [Suspect]
     Indication: TYPE 2 DIABETES MELLITUS
     Route: 065

REACTIONS (4)
  - GLYCOSYLATED HAEMOGLOBIN INCREASED [None]
  - FATIGUE [None]
  - FEELING ABNORMAL [None]
  - LATENT AUTOIMMUNE DIABETES IN ADULTS [None]
